FAERS Safety Report 4923502-8 (Version None)
Quarter: 2006Q1

REPORT INFORMATION
  Report Type: 
  Country: None (occurrence: None)
  Receive Date: 20060227
  Receipt Date: 20060217
  Transmission Date: 20060701
  Serious: Yes (Other)
  Sender: FDA-Public Use
  Company Number: PHBS2006BR02828

PATIENT
  Age: 7 Year
  Sex: Male
  Weight: 36 kg

DRUGS (1)
  1. RITALIN [Suspect]
     Indication: DISTURBANCE IN ATTENTION
     Dosage: 5 MG, QHS
     Route: 048

REACTIONS (1)
  - WEIGHT INCREASED [None]
